FAERS Safety Report 7166643-X (Version None)
Quarter: 2010Q4

REPORT INFORMATION
  Report Type: 
  Country: None (occurrence: None)
  Receive Date: 20101203
  Receipt Date: 20101123
  Transmission Date: 20110411
  Serious: Yes (Hospitalization)
  Sender: FDA-Public Use
  Company Number: THQ2010A03678

PATIENT
  Age: 50 Year
  Sex: Male

DRUGS (2)
  1. LANSOPRAZOLE [Suspect]
     Indication: DYSPEPSIA
     Dosage: (30 MG) PER ORAL
     Route: 048
  2. CORASPIN 100(ACETYLSALICYLIC ACID) [Concomitant]

REACTIONS (3)
  - DIARRHOEA [None]
  - KOUNIS SYNDROME [None]
  - PERICARDIAL EFFUSION [None]
